FAERS Safety Report 5024832-4 (Version None)
Quarter: 2006Q2

REPORT INFORMATION
  Report Type: 
  Country: None (occurrence: None)
  Receive Date: 20060607
  Receipt Date: 20060526
  Transmission Date: 20061013
  Serious: Yes (Life-Threatening, Other)
  Sender: FDA-Public Use
  Company Number: HQWYE567930MAY06

PATIENT
  Age: 88 Year
  Sex: Female

DRUGS (5)
  1. CORDARONE [Suspect]
     Dosage: 400 MG 1X PER 1 DAY ORAL; SEE IMAGE
     Route: 048
     Dates: start: 20050728, end: 20050729
  2. CORDARONE [Suspect]
     Dosage: 400 MG 1X PER 1 DAY ORAL; SEE IMAGE
     Route: 048
     Dates: start: 20050730, end: 20050802
  3. LASIX [Suspect]
     Dosage: SEE IMAGE
     Route: 042
     Dates: start: 20050101, end: 20050101
  4. LASIX [Suspect]
     Dosage: SEE IMAGE
     Route: 042
     Dates: start: 20050101, end: 20050101
  5. LASIX [Suspect]
     Dosage: SEE IMAGE
     Route: 042
     Dates: start: 20050728, end: 20050101

REACTIONS (2)
  - HYPOKALAEMIA [None]
  - TORSADE DE POINTES [None]
